FAERS Safety Report 13801234 (Version 2)
Quarter: 2017Q3

REPORT INFORMATION
  Report Type: Spontaneous
  Country: DE (occurrence: DE)
  Receive Date: 20170727
  Receipt Date: 20170811
  Transmission Date: 20171127
  Serious: Yes (Disabling)
  Sender: FDA-Public Use
  Company Number: GXKR2017DE003787

PATIENT
  Sex: Male

DRUGS (1)
  1. DOXYCYLIN 1A PHARMA [Suspect]
     Active Substance: DOXYCYCLINE
     Indication: IMMUNOMODULATORY THERAPY
     Dosage: 100 MG, ONCE DAILY
     Route: 048
     Dates: start: 20170504, end: 20170605

REACTIONS (8)
  - Gait disturbance [Recovering/Resolving]
  - Product use in unapproved indication [Recovered/Resolved]
  - Arthralgia [Recovering/Resolving]
  - Pain in extremity [Recovering/Resolving]
  - Muscle twitching [Recovering/Resolving]
  - Loss of personal independence in daily activities [Recovering/Resolving]
  - Myalgia [Recovering/Resolving]
  - Paraesthesia [Recovering/Resolving]

NARRATIVE: CASE EVENT DATE: 20170504
